FAERS Safety Report 9707380 (Version 1)
Quarter: 2013Q4

REPORT INFORMATION
  Report Type: Spontaneous
  Country: US (occurrence: US)
  Receive Date: 20131125
  Receipt Date: 20131125
  Transmission Date: 20140711
  Serious: No
  Sender: FDA-Public Use
  Company Number: US-GLAXOSMITHKLINE-A1041748A

PATIENT
  Age: 61 Year
  Sex: Female

DRUGS (5)
  1. FLOVENT [Suspect]
     Indication: PRODUCT USED FOR UNKNOWN INDICATION
     Dosage: 1PUFF TWICE PER DAY
     Dates: start: 201309
  2. VENTOLIN [Suspect]
  3. PULMICORT [Suspect]
  4. ALBUTEROL [Suspect]
     Route: 055
  5. PRO-AIR [Concomitant]

REACTIONS (4)
  - Dizziness [Recovered/Resolved]
  - Coordination abnormal [Unknown]
  - Fall [Unknown]
  - Paranoia [Unknown]
